FAERS Safety Report 16836012 (Version 1)
Quarter: 2019Q3

REPORT INFORMATION
  Report Type: Spontaneous
  Country: CN (occurrence: CN)
  Receive Date: 20190920
  Receipt Date: 20190920
  Transmission Date: 20191005
  Serious: Yes (Hospitalization)
  Sender: FDA-Public Use
  Company Number: CN-BAXTER-2019BAX018223

PATIENT
  Age: 36 Year
  Sex: Female
  Weight: 55 kg

DRUGS (12)
  1. 0.9% SODIUM CHLORIDE INJECTION [Suspect]
     Active Substance: SODIUM CHLORIDE
     Indication: MEDICATION DILUTION
     Dosage: CYCLOPHOSPHAMIDE 0.70 G DILUTED WITH NS 500 ML (50 DROPS/MIN)
     Route: 041
     Dates: start: 20190826, end: 20190826
  2. 0.9% SODIUM CHLORIDE INJECTION [Suspect]
     Active Substance: SODIUM CHLORIDE
     Dosage: PACLITAXEL (ALBUMIN BOUND) 380 MG DILUTED WITH 0.9% SODIUM CHLORIDE 76 ML (30 DROPS/MIN)
     Route: 041
     Dates: start: 20190826, end: 20190826
  3. PACLITAXEL. [Suspect]
     Active Substance: PACLITAXEL
     Dosage: DOSE RE-INTRODUCED, PACLITAXEL (ALBUMIN BOUND) +0.9% SODIUM CHLORIDE
     Route: 041
  4. 5% GLUCOSE  INJECTION [Suspect]
     Active Substance: DEXTROSE
     Dosage: DOSE RE-INTRODUCED, PIRARUBICIN+ 5 % GLUCOSE
     Route: 041
  5. PACLITAXEL. [Suspect]
     Active Substance: PACLITAXEL
     Indication: BREAST CANCER
     Dosage: PACLITAXEL (ALBUMIN BOUND) 380 MG DILUTED WITH 0.9% SODIUM CHLORIDE 76 ML (30 DROPS/MIN)
     Route: 041
     Dates: start: 20190826, end: 20190826
  6. 0.9% SODIUM CHLORIDE INJECTION [Suspect]
     Active Substance: SODIUM CHLORIDE
     Dosage: DOSE RE-INTRODUCED, PACLITAXEL (ALBUMIN BOUND) +0.9% SODIUM CHLORIDE
     Route: 041
  7. PIRARUBICIN HYDROCHLORIDE [Suspect]
     Active Substance: PIRARUBICIN HYDROCHLORIDE
     Dosage: DOSE RE-INTRODUCED, PIRARUBICIN HYDROCHLORIDE + 5% GLUCOSE
     Route: 041
  8. PIRARUBICIN HYDROCHLORIDE [Suspect]
     Active Substance: PIRARUBICIN HYDROCHLORIDE
     Indication: BREAST CANCER
     Dosage: PIRARUBICIN HYDROCHLORIDE 70 MG DILUTED WITH 5 % GLUCOSE 100 ML (40 DROPS/MIN)
     Route: 041
     Dates: start: 20190826, end: 20190826
  9. ENDOXAN [Suspect]
     Active Substance: CYCLOPHOSPHAMIDE
     Indication: BREAST CANCER
     Dosage: CYCLOPHOSPHAMIDE 0.70 G DILUTED WITH NS 500 ML (50 DROPS/MIN)
     Route: 041
     Dates: start: 20190826, end: 20190826
  10. ENDOXAN [Suspect]
     Active Substance: CYCLOPHOSPHAMIDE
     Dosage: DOSE RE-INTRODUCED, CYCLOPHOSPHAMIDE + NS
     Route: 041
  11. 0.9% SODIUM CHLORIDE INJECTION [Suspect]
     Active Substance: SODIUM CHLORIDE
     Dosage: DOSE RE-INTRODUCED, CYCLOPHOSPHAMIDE+NS
     Route: 041
  12. 5% GLUCOSE  INJECTION [Suspect]
     Active Substance: DEXTROSE
     Indication: MEDICATION DILUTION
     Dosage: PIRARUBICIN HYDROCHLORIDE DILUTED WITH 5 % GLUCOSE 100 ML (40 DROPS/MIN)
     Route: 041
     Dates: start: 20190826, end: 20190826

REACTIONS (3)
  - Bone marrow failure [Unknown]
  - Agranulocytosis [Recovered/Resolved]
  - Leukopenia [Recovered/Resolved]

NARRATIVE: CASE EVENT DATE: 20190904
